FAERS Safety Report 10284010 (Version 1)
Quarter: 2014Q3

REPORT INFORMATION
  Report Type: Spontaneous
  Country: JP (occurrence: JP)
  Receive Date: 20140708
  Receipt Date: 20140708
  Transmission Date: 20150326
  Serious: Yes (Other)
  Sender: FDA-Public Use
  Company Number: JP-PFIZER INC-2014182578

PATIENT
  Sex: Male

DRUGS (1)
  1. LYRICA [Suspect]
     Active Substance: PREGABALIN
     Dosage: 175 MG, DAILY (75 MG MORNING, 25 MG NOON, 75 MG EVENING)
     Route: 048
     Dates: start: 201308

REACTIONS (2)
  - Abasia [Unknown]
  - Somnolence [Unknown]
